FAERS Safety Report 5906182-4 (Version None)
Quarter: 2008Q4

REPORT INFORMATION
  Report Type: 
  Country: None (occurrence: None)
  Receive Date: 20081002
  Receipt Date: 20080925
  Transmission Date: 20090506
  Serious: Yes (Hospitalization)
  Sender: FDA-Public Use
  Company Number: PHHO2004BE05970

PATIENT
  Sex: Male
  Weight: 62.6 kg

DRUGS (5)
  1. DIOVAN T30230+TAB+HY [Suspect]
     Dosage: 40MG
     Dates: start: 20030730
  2. VALSARTAN / DIOVAN / VAL489 / CGP 48933 [Suspect]
     Indication: HYPERTENSION
     Dosage: 40 UNK, UNK
  3. PREDNISONE [Concomitant]
  4. PROGRAFT [Concomitant]
  5. CELLCEPT [Concomitant]

REACTIONS (3)
  - BLOOD CREATININE INCREASED [None]
  - DEHYDRATION [None]
  - GASTROENTERITIS [None]
